FAERS Safety Report 20737230 (Version 1)
Quarter: 2022Q2

REPORT INFORMATION
  Report Type: Spontaneous
  Country: None (occurrence: US)
  Receive Date: 20220421
  Receipt Date: 20220421
  Transmission Date: 20220721
  Serious: No
  Sender: FDA-Public Use
  Company Number: US-Acacia Pharma Limited-2128008

PATIENT
  Age: 67 Year
  Sex: Male
  Weight: 159.09 kg

DRUGS (3)
  1. BYFAVO [Suspect]
     Active Substance: REMIMAZOLAM BESYLATE
     Indication: Sedative therapy
     Route: 042
     Dates: start: 20220412, end: 20220412
  2. METFORMIN [Concomitant]
     Active Substance: METFORMIN HYDROCHLORIDE
  3. DIGITOXIN [Concomitant]
     Active Substance: DIGITOXIN

REACTIONS (1)
  - Drug ineffective [Recovered/Resolved]

NARRATIVE: CASE EVENT DATE: 20220412
